FAERS Safety Report 7013977-5 (Version None)
Quarter: 2010Q3

REPORT INFORMATION
  Report Type: 
  Country: None (occurrence: None)
  Receive Date: 20100926
  Receipt Date: 20100915
  Transmission Date: 20110219
  Serious: Yes (Other)
  Sender: FDA-Public Use
  Company Number: PHHY2010US61784

PATIENT
  Sex: Female

DRUGS (6)
  1. RECLAST [Suspect]
     Dosage: UNK
  2. BONIVA [Suspect]
  3. ADVAIR DISKUS 100/50 [Suspect]
     Dosage: UNK
  4. ANALGESICS [Concomitant]
  5. ANTIHISTAMINICS [Concomitant]
  6. DECONGESTANTS [Concomitant]

REACTIONS (6)
  - BED REST [None]
  - DISCOMFORT [None]
  - INFLUENZA LIKE ILLNESS [None]
  - MALAISE [None]
  - SKIN CANCER [None]
  - TOOTH DISORDER [None]
